FAERS Safety Report 19266453 (Version 2)
Quarter: 2021Q2

REPORT INFORMATION
  Report Type: Report from Study
  Country: US (occurrence: US)
  Receive Date: 20210518
  Receipt Date: 20210518
  Transmission Date: 20210717
  Serious: Yes (Hospitalization)
  Sender: FDA-Public Use
  Company Number: US-BEIGENE USA INC-BGN-2021-001619

PATIENT

DRUGS (8)
  1. ACYCLOVIR. [Concomitant]
     Active Substance: ACYCLOVIR
     Indication: INFECTION PROPHYLAXIS
     Dosage: 400 MILLIGRAM/KILOGRAM, 2X / DAY
     Route: 048
     Dates: start: 20210407
  2. PROCHLORPERAZINE EDISYLATE. [Concomitant]
     Active Substance: PROCHLORPERAZINE EDISYLATE
     Indication: NAUSEA
     Dosage: 10 MILLIGRAM/KILOGRAM, 4X / DAY
     Route: 048
     Dates: start: 20210407
  3. ZANDELISIB. [Suspect]
     Active Substance: ZANDELISIB
     Indication: FOLLICULAR LYMPHOMA
     Dosage: 60 MILLIGRAM, 1X / DAY
     Route: 048
     Dates: start: 20210408
  4. SULFAMETHOXAZOLE AND TRIMETHOPRIM [Concomitant]
     Active Substance: SULFAMETHOXAZOLE\TRIMETHOPRIM
     Indication: INFECTION PROPHYLAXIS
     Dosage: 800?160 MILLIGRAM/KILOGRAM, Q MON?WED?FRI
     Route: 048
     Dates: start: 20210407
  5. ZANUBRUTINIB [Suspect]
     Active Substance: ZANUBRUTINIB
     Indication: FOLLICULAR LYMPHOMA
     Dosage: 80 MILLIGRAM, 2X/ DAY
     Route: 048
     Dates: start: 20210408
  6. ALLOPURINOL. [Concomitant]
     Active Substance: ALLOPURINOL
     Indication: BLOOD URIC ACID INCREASED
     Dosage: 300 MILLIGRAM/KILOGRAM, 1X / DAY
     Route: 048
     Dates: start: 20210406
  7. NORMAL SALINE [Concomitant]
     Active Substance: SODIUM CHLORIDE
  8. CEFPODOXIME [Concomitant]
     Active Substance: CEFPODOXIME
     Indication: PRODUCT USED FOR UNKNOWN INDICATION
     Dosage: 200 MILLIGRAM, 2X / DAY
     Route: 048
     Dates: start: 20210501, end: 20210505

REACTIONS (1)
  - Drug reaction with eosinophilia and systemic symptoms [Recovered/Resolved]

NARRATIVE: CASE EVENT DATE: 20210429
